FAERS Safety Report 16718115 (Version 3)
Quarter: 2019Q4

REPORT INFORMATION
  Report Type: Spontaneous
  Country: US (occurrence: US)
  Receive Date: 20190819
  Receipt Date: 20191018
  Transmission Date: 20200122
  Serious: Yes (Other)
  Sender: FDA-Public Use
  Company Number: US-ALEXION PHARMACEUTICALS INC.-A201912405

PATIENT
  Age: 55 Year
  Sex: Female

DRUGS (3)
  1. STRENSIQ [Suspect]
     Active Substance: ASFOTASE ALFA
     Indication: HYPOPHOSPHATASIA
     Dosage: 6 MG/KG, QW
     Route: 065
  2. STRENSIQ [Suspect]
     Active Substance: ASFOTASE ALFA
     Dosage: 4 MG/KG, QW
     Route: 065
  3. STRENSIQ [Suspect]
     Active Substance: ASFOTASE ALFA
     Dosage: NR

REACTIONS (11)
  - Soft tissue injury [Unknown]
  - Myalgia [Unknown]
  - Muscular weakness [Unknown]
  - Pain in extremity [Unknown]
  - Fatigue [Unknown]
  - Erythromelalgia [Unknown]
  - Raynaud^s phenomenon [Unknown]
  - Pain [Unknown]
  - Neuropathy peripheral [Unknown]
  - Ehlers-Danlos syndrome [Not Recovered/Not Resolved]
  - Muscle fatigue [Unknown]
